FAERS Safety Report 6359021-4 (Version None)
Quarter: 2009Q3

REPORT INFORMATION
  Report Type: 
  Country: None (occurrence: None)
  Receive Date: 20090917
  Receipt Date: 20070816
  Transmission Date: 20100115
  Serious: Yes (Other)
  Sender: FDA-Public Use
  Company Number: US-ASTRAZENECA-2007UW12158

PATIENT
  Age: 16877 Day
  Sex: Male
  Weight: 100.5 kg

DRUGS (22)
  1. SEROQUEL [Suspect]
     Indication: DEPRESSION
     Dosage: 100-400 MG
     Route: 048
     Dates: start: 20000101, end: 20040315
  2. SEROQUEL [Suspect]
     Indication: SCHIZOPHRENIA
     Dosage: 100-400 MG
     Route: 048
     Dates: start: 20000101, end: 20040315
  3. SEROQUEL [Suspect]
     Route: 048
     Dates: start: 20000324, end: 20040315
  4. SEROQUEL [Suspect]
     Route: 048
     Dates: start: 20000324, end: 20040315
  5. SEROQUEL [Suspect]
     Dosage: 100-400 MG
     Route: 048
     Dates: start: 20040318
  6. SEROQUEL [Suspect]
     Dosage: 100-400 MG
     Route: 048
     Dates: start: 20040318
  7. GABAPENTIN [Concomitant]
     Indication: NEUROPATHY PERIPHERAL
     Dosage: 300 MG OD, 300 MG BID
     Route: 048
     Dates: start: 20061122
  8. GEODON [Concomitant]
     Indication: AFFECTIVE DISORDER
     Route: 048
     Dates: start: 20050523
  9. BENZTROPINE MESYLATE [Concomitant]
     Indication: MUSCULOSKELETAL STIFFNESS
     Route: 048
     Dates: start: 20050523
  10. BENZTROPINE MESYLATE [Concomitant]
     Indication: MUSCLE SPASMS
     Route: 048
     Dates: start: 20050523
  11. BENZTROPINE MESYLATE [Concomitant]
     Indication: TREMOR
     Route: 048
     Dates: start: 20050523
  12. INSULIN 70/30 (HUMAN) [Concomitant]
     Indication: BLOOD GLUCOSE
     Dosage: 65 UNITS IN MORNING, 45 UNITS IN EVENING
     Route: 058
     Dates: start: 20040315
  13. NORVASC [Concomitant]
     Route: 048
     Dates: start: 20040315
  14. CLONIDINE HCL [Concomitant]
     Dosage: 0.2 MG-0.3 MG
     Route: 048
     Dates: start: 20061122
  15. RANITIDINE HCL [Concomitant]
     Indication: GASTRIC DISORDER
     Dosage: 150 MG-300 MG
     Route: 048
     Dates: start: 20000117
  16. ASPIRIN [Concomitant]
     Dates: start: 20061101
  17. LISINOPRIL [Concomitant]
     Route: 048
     Dates: start: 20000225
  18. FELODIPINE [Concomitant]
     Indication: BLOOD PRESSURE
     Route: 048
     Dates: start: 19990921
  19. GLYBURIDE [Concomitant]
     Route: 048
     Dates: start: 19990921
  20. KETOPROFEN [Concomitant]
     Dosage: 100 PERCENT AS DIRECTED
     Dates: start: 20061122
  21. NAPROSYN [Concomitant]
     Route: 048
     Dates: start: 20000224
  22. CELEXA [Concomitant]
     Dates: start: 20020722

REACTIONS (9)
  - DIABETES MELLITUS [None]
  - DIABETIC FOOT [None]
  - DIABETIC NEUROPATHY [None]
  - ERECTILE DYSFUNCTION [None]
  - NEUROPATHY PERIPHERAL [None]
  - POLYNEUROPATHY [None]
  - TRANSAMINASES INCREASED [None]
  - TYPE 2 DIABETES MELLITUS [None]
  - VISION BLURRED [None]
